FAERS Safety Report 5766006-5 (Version None)
Quarter: 2008Q2

REPORT INFORMATION
  Report Type: 
  Country: None (occurrence: None)
  Receive Date: 20080611
  Receipt Date: 20080605
  Transmission Date: 20081010
  Serious: Yes (Hospitalization)
  Sender: FDA-Public Use
  Company Number: GB-PFIZER INC-2008045176

PATIENT
  Sex: Male

DRUGS (3)
  1. HYDROXYZINE HYDROCHLORIDE [Suspect]
     Indication: PRURITUS
     Route: 050
     Dates: start: 20071107, end: 20071121
  2. CETIRIZINE HCL [Suspect]
     Indication: PRURITUS
     Route: 048
     Dates: start: 20071115, end: 20071121
  3. ZOPICLONE [Concomitant]
     Indication: INSOMNIA
     Route: 048
     Dates: start: 20071108, end: 20071127

REACTIONS (1)
  - RASH [None]
